FAERS Safety Report 10259890 (Version 1)
Quarter: 2014Q2

REPORT INFORMATION
  Report Type: Spontaneous
  Country: GB (occurrence: GB)
  Receive Date: 20140625
  Receipt Date: 20140625
  Transmission Date: 20141212
  Serious: Yes (Other)
  Sender: FDA-Public Use
  Company Number: GB-GLAXOSMITHKLINE-B1005570A

PATIENT
  Age: 61 Year
  Sex: Female
  Weight: 65 kg

DRUGS (9)
  1. SEREVENT [Suspect]
     Indication: CHRONIC OBSTRUCTIVE PULMONARY DISEASE
     Route: 055
  2. AMOXICILLIN [Concomitant]
     Dates: start: 20140327, end: 20140403
  3. DICLOFENAC SODIUM [Concomitant]
     Dates: start: 20140217, end: 20140317
  4. GABAPENTIN [Concomitant]
     Dates: start: 20140306, end: 20140501
  5. NAPROXEN [Concomitant]
     Dates: start: 20140327, end: 20140414
  6. OMEPRAZOLE [Concomitant]
     Dates: start: 20140310, end: 20140505
  7. PAROXETINE [Concomitant]
     Dates: start: 20140306, end: 20140405
  8. PREDNISOLONE [Concomitant]
     Dates: start: 20140327, end: 20140328
  9. SIMVASTATIN [Concomitant]
     Dates: start: 20140310, end: 20140505

REACTIONS (1)
  - Mouth ulceration [Recovering/Resolving]
